FAERS Safety Report 4287269-1 (Version None)
Quarter: 2004Q1

REPORT INFORMATION
  Report Type: 
  Country: None (occurrence: None)
  Receive Date: 20040126
  Receipt Date: 20031103
  Transmission Date: 20041129
  Serious: No
  Sender: FDA-Public Use
  Company Number: USA030843992

PATIENT
  Age: 65 Year
  Sex: Female
  Weight: 114 kg

DRUGS (8)
  1. FORTEO [Suspect]
     Indication: OSTEOPOROSIS
     Dosage: 20 UG/DAY
     Dates: start: 20030601
  2. PREDNISONE [Concomitant]
  3. POTASSIUM [Concomitant]
  4. RANITIDINE [Concomitant]
  5. NORVASC [Concomitant]
  6. FLUOXETINE HCL [Concomitant]
  7. ZYRTEC [Concomitant]
  8. TORSEMIDE [Concomitant]

REACTIONS (3)
  - DYSPNOEA [None]
  - OEDEMA PERIPHERAL [None]
  - SLEEP APNOEA SYNDROME [None]
